FAERS Safety Report 5450409-2 (Version None)
Quarter: 2007Q3

REPORT INFORMATION
  Report Type: 
  Country: None (occurrence: None)
  Receive Date: 20070912
  Receipt Date: 20070831
  Transmission Date: 20080115
  Serious: Yes (Hospitalization)
  Sender: FDA-Public Use
  Company Number: US-SHR-US-2007-012291

PATIENT
  Age: 57 Year
  Sex: Female
  Weight: 77.098 kg

DRUGS (27)
  1. BETASERON [Suspect]
     Indication: RELAPSING-REMITTING MULTIPLE SCLEROSIS
     Dosage: UNK, UNK
     Route: 058
     Dates: start: 19981001
  2. BETASERON [Suspect]
     Dosage: 8 MIU, EVERY 2D
     Route: 058
     Dates: start: 20031201
  3. BETASERON [Suspect]
     Route: 058
     Dates: end: 20021015
  4. KEPPRA [Concomitant]
  5. TOPROL-XL [Concomitant]
  6. NORVASC [Concomitant]
  7. LASIX [Concomitant]
  8. K-DUR 10 [Concomitant]
  9. LUNESTA [Concomitant]
  10. ROZEREM [Concomitant]
  11. RESTASIS [Concomitant]
  12. MANDELAMINE ^PARKE DAVIS^ [Concomitant]
  13. NEURONTIN [Concomitant]
  14. NEXIUM [Concomitant]
  15. BACLOFEN [Concomitant]
  16. OXYTROL [Concomitant]
  17. FLONASE [Concomitant]
  18. VYTORIN [Concomitant]
  19. ENABLEX [Concomitant]
  20. VITAMIN CAP [Concomitant]
  21. CALCIUM [Concomitant]
  22. BENADRYL ^PFIZER WARNER-LAMBERT^ [Concomitant]
  23. COLACE [Concomitant]
  24. DILAUDID [Concomitant]
  25. VICODIN [Concomitant]
  26. ZOFRAN [Concomitant]
  27. ANZEMET [Concomitant]

REACTIONS (4)
  - CENTRAL NERVOUS SYSTEM LESION [None]
  - CERVICAL MYELOPATHY [None]
  - CHILLS [None]
  - INJECTION SITE BRUISING [None]
